FAERS Safety Report 6310346-8 (Version None)
Quarter: 2009Q3

REPORT INFORMATION
  Report Type: 
  Country: None (occurrence: None)
  Receive Date: 20090814
  Receipt Date: 20090812
  Transmission Date: 20100115
  Serious: Yes (Death, Hospitalization, Other)
  Sender: FDA-Public Use
  Company Number: PHHY2009BR22777

PATIENT
  Sex: Female

DRUGS (1)
  1. FORASEQ [Suspect]
     Dosage: 12//400 MCG, TWICE A DAY

REACTIONS (7)
  - BLADDER NEOPLASM [None]
  - CARDIAC ARREST [None]
  - CONGESTIVE CARDIOMYOPATHY [None]
  - DEPRESSION [None]
  - GENERALISED OEDEMA [None]
  - NERVOUSNESS [None]
  - NO THERAPEUTIC RESPONSE [None]
